FAERS Safety Report 13628387 (Version 1)
Quarter: 2017Q2

REPORT INFORMATION
  Report Type: Spontaneous
  Country: US (occurrence: US)
  Receive Date: 20170607
  Receipt Date: 20170607
  Transmission Date: 20170830
  Serious: Yes (Hospitalization)
  Sender: FDA-Public Use
  Company Number: US-ENDO PHARMACEUTICALS INC-2017-003248

PATIENT
  Age: 52 Year
  Sex: Female

DRUGS (1)
  1. OPANA ER [Suspect]
     Active Substance: OXYMORPHONE HYDROCHLORIDE
     Indication: PRODUCT USED FOR UNKNOWN INDICATION
     Dosage: UNK UNKNOWN, UNKNOWN
     Route: 042

REACTIONS (11)
  - Septic shock [Unknown]
  - Drug use disorder [Unknown]
  - Injection site abscess [Unknown]
  - Injection site cellulitis [Unknown]
  - Acute kidney injury [Unknown]
  - Respiratory failure [Unknown]
  - Intentional product use issue [Unknown]
  - Staphylococcal bacteraemia [Unknown]
  - Staphylococcal infection [Unknown]
  - Intentional product misuse [Unknown]
  - Endocarditis [Unknown]
